FAERS Safety Report 9354243 (Version 2)
Quarter: 2013Q2

REPORT INFORMATION
  Report Type: Spontaneous
  Country: US (occurrence: US)
  Receive Date: 20130618
  Receipt Date: 20130625
  Transmission Date: 20140414
  Serious: Yes (Other)
  Sender: FDA-Public Use
  Company Number: US-GILEAD-2013-0076606

PATIENT
  Age: 24 Year
  Sex: Female

DRUGS (4)
  1. LETAIRIS [Suspect]
     Indication: ANOMALOUS PULMONARY VENOUS CONNECTION
     Dosage: 10 MG, UNK
     Dates: start: 20130128
  2. LETAIRIS [Suspect]
     Indication: PULMONARY HYPERTENSION
     Dates: start: 20130129
  3. LETAIRIS [Suspect]
     Indication: PULMONARY EMBOLISM
  4. ADCIRCA [Concomitant]

REACTIONS (4)
  - Anomalous pulmonary venous connection [Unknown]
  - Depression [Unknown]
  - Fatigue [Unknown]
  - Headache [Unknown]
